FAERS Safety Report 10881964 (Version 3)
Quarter: 2015Q1

REPORT INFORMATION
  Report Type: Spontaneous
  Country: CA (occurrence: CA)
  Receive Date: 20150303
  Receipt Date: 20150326
  Transmission Date: 20150721
  Serious: Yes (Other)
  Sender: FDA-Public Use
  Company Number: CA-GLAXOSMITHKLINE-A1084095A

PATIENT

DRUGS (6)
  1. VARENICLINE [Suspect]
     Active Substance: VARENICLINE
     Dosage: DOSAGE FORM: UNSPECIFIED
     Route: 065
  2. NICOTINE. [Suspect]
     Active Substance: NICOTINE
     Indication: EX-TOBACCO USER
     Route: 065
  3. NICOTINE. [Suspect]
     Active Substance: NICOTINE
     Indication: EX-TOBACCO USER
     Dosage: DOSAGE FORM: INHALATION
     Route: 065
  4. VARENICLINE [Suspect]
     Active Substance: VARENICLINE
     Dosage: DOSAGE FORM: UNSPECIFIED
     Route: 065
  5. NICODERM CQ [Suspect]
     Active Substance: NICOTINE
     Indication: SMOKING CESSATION THERAPY
     Route: 065
  6. VARENICLINE [Suspect]
     Active Substance: VARENICLINE
     Indication: EX-TOBACCO USER
     Dosage: DOSAGE FORM: UNSPECIFIED
     Route: 065

REACTIONS (11)
  - Depression [Unknown]
  - Increased appetite [Unknown]
  - Withdrawal syndrome [Unknown]
  - Disturbance in attention [Unknown]
  - Emotional distress [Unknown]
  - Anxiety [Unknown]
  - Restlessness [Unknown]
  - Insomnia [Unknown]
  - Anger [Unknown]
  - Suicidal ideation [Unknown]
  - Drug ineffective [Unknown]
